FAERS Safety Report 10709136 (Version 1)
Quarter: 2015Q1

REPORT INFORMATION
  Report Type: Report from Study
  Country: US (occurrence: US)
  Receive Date: 20150114
  Receipt Date: 20150114
  Transmission Date: 20150721
  Serious: Yes (Death, Hospitalization)
  Sender: FDA-Public Use
  Company Number: US-009507513-1409USA005184

PATIENT
  Age: 78 Year
  Sex: Male

DRUGS (6)
  1. IPILIMUMAB [Suspect]
     Active Substance: IPILIMUMAB
  2. METFORMIN [Concomitant]
     Active Substance: METFORMIN HYDROCHLORIDE
     Indication: TYPE 2 DIABETES MELLITUS
     Dosage: STENGTH 850MG, BID, 1700MG DAILY
     Route: 048
     Dates: start: 20140819
  3. PEMBROLIZUMAB. [Suspect]
     Active Substance: PEMBROLIZUMAB
     Indication: METASTATIC MALIGNANT MELANOMA
     Dosage: 193 MG, ONCE
     Route: 042
     Dates: start: 20140904, end: 20140904
  4. LOPERAMIDE EMEC [Concomitant]
     Indication: DIARRHOEA
     Dosage: STRENGTH 2 MG, Q6H PRN
     Route: 048
     Dates: start: 20140819
  5. ENOXAPARIN SODIUM. [Concomitant]
     Active Substance: ENOXAPARIN SODIUM
     Indication: CEREBROVASCULAR ACCIDENT
     Dosage: 100 MG, Q12H
     Route: 058
     Dates: start: 20140819
  6. CRESTOR [Concomitant]
     Active Substance: ROSUVASTATIN CALCIUM
     Indication: HYPERLIPIDAEMIA
     Dosage: STRENGTH 10 MG, QHS, TOTAL DAILY DOSE 10MG
     Route: 048
     Dates: start: 20140819

REACTIONS (5)
  - Dehydration [Fatal]
  - Septic shock [Fatal]
  - Renal failure [Fatal]
  - Atrial flutter [Fatal]
  - Atrial fibrillation [Fatal]

NARRATIVE: CASE EVENT DATE: 20140906
